FAERS Safety Report 26213033 (Version 1)
Quarter: 2025Q4

REPORT INFORMATION
  Report Type: Spontaneous
  Country: US (occurrence: US)
  Receive Date: 20251230
  Receipt Date: 20251230
  Transmission Date: 20260118
  Serious: Yes (Death, Other)
  Sender: AMGEN
  Company Number: US-AMGEN-USASP2025253860

PATIENT
  Age: 51 Year
  Sex: Female

DRUGS (6)
  1. PREDNISONE [Suspect]
     Active Substance: PREDNISONE
     Indication: Pneumocystis jirovecii pneumonia
     Dosage: UNK
     Route: 065
  2. CEFTRIAXONE [Concomitant]
     Active Substance: CEFTRIAXONE
  3. AZITHROMYCIN [Concomitant]
     Active Substance: AZITHROMYCIN
  4. BACTRIM [Concomitant]
     Active Substance: SULFAMETHOXAZOLE\TRIMETHOPRIM
  5. CEFEPIME [Concomitant]
     Active Substance: CEFEPIME HYDROCHLORIDE
  6. VANCOMYCIN [Concomitant]
     Active Substance: VANCOMYCIN

REACTIONS (9)
  - Respiratory failure [Fatal]
  - Acute respiratory distress syndrome [Unknown]
  - Cytomegalovirus chorioretinitis [Unknown]
  - Varicella encephalitis [Unknown]
  - Oesophageal candidiasis [Unknown]
  - Kaposi^s sarcoma [Unknown]
  - Acquired immunodeficiency syndrome [Unknown]
  - Cytomegalovirus infection [Unknown]
  - Hepatitis B [Unknown]
